FAERS Safety Report 8569921 (Version 3)
Quarter: 2013Q1

REPORT INFORMATION
  Report Type: Spontaneous
  Country: JP (occurrence: JP)
  Receive Date: 20120518
  Receipt Date: 20130222
  Transmission Date: 20140127
  Serious: Yes (Hospitalization, Other)
  Sender: FDA-Public Use
  Company Number: JP-ROCHE-1058181

PATIENT
  Age: 81 Year
  Sex: Male
  Weight: 45 kg

DRUGS (14)
  1. ROCEPHIN [Suspect]
     Indication: PNEUMONIA
     Dosage: DOSAGE IS UNCERTAIN.
     Route: 041
     Dates: start: 20120316, end: 20120316
  2. ROCEPHIN [Suspect]
     Indication: PNEUMONIA
     Dosage: DOSAGE IS UNCERTAIN.
     Route: 041
     Dates: start: 20120317, end: 20120322
  3. ROCEPHIN [Suspect]
     Indication: PNEUMONIA
     Dosage: DOSAGE IS UNCERTAIN.
     Route: 041
     Dates: start: 20120322, end: 20120322
  4. MYSLEE [Concomitant]
     Dosage: NEMUMAE
     Route: 048
  5. MUCOSOLVAN L [Concomitant]
     Dosage: EVENING
     Route: 048
  6. AMARYL [Concomitant]
     Dosage: BEFORE THE MORNING
     Route: 048
  7. THEO-DUR [Concomitant]
     Dosage: EMPRESS IN EVENING
     Route: 048
  8. MAGNESIUM OXIDE [Concomitant]
     Dosage: THE MORNING AND EVENING
     Route: 048
  9. SPIRIVA [Concomitant]
     Route: 055
  10. ALLELOCK [Concomitant]
     Dosage: THE MORNING AND EVENING
     Route: 048
  11. NEOMALLERMIN-TR [Concomitant]
     Dosage: THE MORNING AND EVENING
     Route: 048
  12. DEPAKENE-R [Concomitant]
     Dosage: DOSAGE IS UNCERTAIN.
     Route: 065
  13. ALEVIATIN [Concomitant]
     Dosage: DOSAGE IS UNCERTAIN.
     Route: 065
  14. CARBENIN [Concomitant]
     Dosage: DOSAGE IS UNCERTAIN.
     Route: 041

REACTIONS (4)
  - Cholelithiasis [Recovered/Resolved]
  - Cholecystitis [Recovered/Resolved]
  - Pancreatitis [Recovered/Resolved]
  - Epilepsy [Recovered/Resolved]
